FAERS Safety Report 4356594-8 (Version None)
Quarter: 2004Q2

REPORT INFORMATION
  Report Type: 
  Country: None (occurrence: None)
  Receive Date: 20040510
  Receipt Date: 20040510
  Transmission Date: 20050107
  Serious: No
  Sender: FDA-Public Use
  Company Number: None

PATIENT
  Age: 59 Year
  Sex: Female

DRUGS (6)
  1. PARAPLATIN [Suspect]
     Dosage: 552 MG Q 3 WEEKS INTRAVENOUS
     Route: 042
  2. TAXOTERE [Suspect]
     Dosage: 140 MG Q 3 WKS INTRAVENOUS
     Route: 042
  3. GLUCOTROL XL [Concomitant]
  4. AVANDIA [Concomitant]
  5. DECADRON [Concomitant]
  6. LOMOTIL [Concomitant]

REACTIONS (6)
  - COUGH [None]
  - ERYTHEMA [None]
  - FLUSHING [None]
  - NAUSEA [None]
  - PRURITUS [None]
  - RASH [None]
